FAERS Safety Report 6914337-5 (Version None)
Quarter: 2010Q3

REPORT INFORMATION
  Report Type: 
  Country: None (occurrence: None)
  Receive Date: 20100805
  Receipt Date: 20100805
  Transmission Date: 20110219
  Serious: Yes (Hospitalization, Disabling)
  Sender: FDA-Public Use
  Company Number: None

PATIENT
  Sex: Female
  Weight: 54.8852 kg

DRUGS (4)
  1. ACTONEL [Suspect]
     Indication: OSTEOPENIA
     Dosage: 35 ONCE WEEKLY PO
     Route: 048
     Dates: start: 20020130, end: 20070130
  2. ACTONEL [Suspect]
     Indication: OSTEOPOROSIS
     Dosage: 35 ONCE WEEKLY PO
     Route: 048
     Dates: start: 20020130, end: 20070130
  3. BONIVA [Suspect]
     Indication: OSTEOPENIA
     Dosage: 150 ONCE MONTHLY PO
     Route: 048
     Dates: start: 20080425, end: 20090820
  4. BONIVA [Suspect]
     Indication: OSTEOPOROSIS
     Dosage: 150 ONCE MONTHLY PO
     Route: 048
     Dates: start: 20080425, end: 20090820

REACTIONS (4)
  - FALL [None]
  - FEMUR FRACTURE [None]
  - IMPAIRED HEALING [None]
  - STRESS FRACTURE [None]
